FAERS Safety Report 26049260 (Version 1)
Quarter: 2025Q4

REPORT INFORMATION
  Report Type: Spontaneous
  Country: US (occurrence: US)
  Receive Date: 20251115
  Receipt Date: 20251115
  Transmission Date: 20260119
  Serious: Yes (Hospitalization, Other)
  Sender: MACLEODS
  Company Number: US-MACLEODS PHARMA-MAC2025056307

PATIENT

DRUGS (23)
  1. LIDOCAINE [Suspect]
     Active Substance: LIDOCAINE
     Indication: Local anaesthesia
     Dosage: 2 DOSES OF LIDOCAINE 1 MG/KG
     Route: 065
  2. LIDOCAINE [Suspect]
     Active Substance: LIDOCAINE
     Dosage: 10 UG/KG/MIN
     Route: 065
  3. LIDOCAINE [Suspect]
     Active Substance: LIDOCAINE
     Dosage: 40 UG/KG/MIN
     Route: 065
  4. LIDOCAINE [Suspect]
     Active Substance: LIDOCAINE
     Dosage: 2 BOLUSES OF LIDOCAINE 1 MG/KG
     Route: 065
  5. LIDOCAINE [Suspect]
     Active Substance: LIDOCAINE
     Dosage: 50 UG/KG/MIN
     Route: 065
  6. PHENYTOIN [Suspect]
     Active Substance: PHENYTOIN
     Indication: Arrhythmia
     Route: 065
  7. PHENYTOIN [Suspect]
     Active Substance: PHENYTOIN
     Indication: Ventricular tachycardia
  8. ESMOLOL [Suspect]
     Active Substance: ESMOLOL HYDROCHLORIDE
     Indication: Product used for unknown indication
     Dosage: 66 UG/KG/MIN
     Route: 065
  9. ESMOLOL [Suspect]
     Active Substance: ESMOLOL HYDROCHLORIDE
     Dosage: 30 G/KG/MIN
     Route: 065
  10. ESMOLOL [Suspect]
     Active Substance: ESMOLOL HYDROCHLORIDE
     Dosage: 200 UG/KG/MIN
     Route: 065
  11. ESMOLOL [Suspect]
     Active Substance: ESMOLOL HYDROCHLORIDE
     Dosage: 250 UG/KG/MIN
     Route: 065
  12. ESMOLOL [Suspect]
     Active Substance: ESMOLOL HYDROCHLORIDE
     Dosage: 500 G/KG/MIN
     Route: 065
  13. AMIODARONE [Suspect]
     Active Substance: AMIODARONE
     Indication: Product used for unknown indication
     Dosage: AT 3 MG/DOSE,  (1 MG/KG/DOSE)
     Route: 065
  14. AMIODARONE [Suspect]
     Active Substance: AMIODARONE
     Dosage: 3 BOLUSES OF AMIODARONE 1 MG/KG
     Route: 065
  15. MAGNESIUM [Concomitant]
     Active Substance: MAGNESIUM
     Indication: Product used for unknown indication
     Route: 065
  16. CALCIUM GLUCONATE [Concomitant]
     Active Substance: CALCIUM GLUCONATE
     Indication: Product used for unknown indication
     Route: 065
  17. POTASSIUM [Concomitant]
     Active Substance: POTASSIUM
     Indication: Product used for unknown indication
     Dosage: 1 MEQ/KG
     Route: 065
  18. ISOPROTERENOL [Concomitant]
     Active Substance: ISOPROTERENOL
     Dosage: 0.05 UG/KG/MIN
     Route: 065
  19. FENTANYL [Concomitant]
     Active Substance: FENTANYL
     Dosage: 5 UG/KG
     Route: 065
  20. DOPAMINE [Concomitant]
     Active Substance: DOPAMINE HYDROCHLORIDE
     Route: 065
  21. MILRINONE [Concomitant]
     Active Substance: MILRINONE
     Indication: Product used for unknown indication
     Dosage: 0.2 UG/KG/MIN
     Route: 065
  22. VECURONIUM [Concomitant]
     Active Substance: VECURONIUM BROMIDE
     Route: 065
  23. IBUPROFEN [Concomitant]
     Active Substance: IBUPROFEN
     Route: 065

REACTIONS (6)
  - Local anaesthetic systemic toxicity [Recovered/Resolved]
  - Areflexia [Recovered/Resolved]
  - Mydriasis [Recovered/Resolved]
  - Movement disorder [Recovered/Resolved]
  - Neurotoxicity [Recovered/Resolved]
  - Drug interaction [Unknown]
